FAERS Safety Report 6481645-4 (Version None)
Quarter: 2009Q4

REPORT INFORMATION
  Report Type: 
  Country: None (occurrence: None)
  Receive Date: 20091208
  Receipt Date: 20091126
  Transmission Date: 20100525
  Serious: Yes (Hospitalization)
  Sender: FDA-Public Use
  Company Number: FR-ELI_LILLY_AND_COMPANY-FR200909000368

PATIENT
  Age: 70 Year
  Sex: Male
  Weight: 67 kg

DRUGS (3)
  1. FORTEO [Suspect]
     Indication: OSTEOPOROSIS
     Dosage: 20 UG, DAILY (1/D)
     Route: 058
     Dates: start: 20090601
  2. CORTANCYL [Concomitant]
     Indication: POLYMYALGIA RHEUMATICA
     Dates: start: 20080901
  3. CALCITE D [Concomitant]
     Route: 048
     Dates: start: 20090401

REACTIONS (1)
  - PYELOCALIECTASIS [None]
